FAERS Safety Report 17111937 (Version 1)
Quarter: 2019Q4

REPORT INFORMATION
  Report Type: Spontaneous
  Country: BR (occurrence: BR)
  Receive Date: 20191204
  Receipt Date: 20191204
  Transmission Date: 20200122
  Serious: Yes (Hospitalization, Other)
  Sender: FDA-Public Use
  Company Number: BR-B.I. PHARMACEUTICALS,INC./RIDGEFIELD-2019-BI-116845

PATIENT
  Age: 90 Year
  Sex: Female
  Weight: 58.3 kg

DRUGS (8)
  1. OFEV [Suspect]
     Active Substance: NINTEDANIB
     Dosage: THE PATIENT STARTED USING 100MG TWICE DAILY, EVER 12 HOURS
     Route: 065
     Dates: start: 201706
  2. LACIDIPINO [Concomitant]
     Indication: HYPERTENSION
     Route: 065
  3. OMEPRAZOL [OMEPRAZOLE MAGNESIUM] [Concomitant]
     Indication: DYSPEPSIA
     Route: 065
  4. OFEV [Suspect]
     Active Substance: NINTEDANIB
     Route: 065
     Dates: start: 201705
  5. ATORVASTATINA [ATORVASTATIN CALCIUM] [Concomitant]
     Indication: DYSLIPIDAEMIA
     Route: 065
  6. ATENOLOL + CLORTALIDONA [Concomitant]
     Indication: HYPERTENSION
     Route: 065
  7. INDAPAMIDA [Concomitant]
     Active Substance: INDAPAMIDE
     Indication: HYPERTENSION
     Route: 065
  8. OFEV [Suspect]
     Active Substance: NINTEDANIB
     Indication: PULMONARY FIBROSIS
     Route: 065
     Dates: start: 201704

REACTIONS (13)
  - Idiopathic pulmonary fibrosis [Unknown]
  - Hepatic enzyme increased [Recovered/Resolved]
  - Cardiac failure congestive [Unknown]
  - Deep vein thrombosis [Unknown]
  - Weight decreased [Recovered/Resolved]
  - Cough [Unknown]
  - Infection [Unknown]
  - Dyspnoea [Unknown]
  - Diarrhoea [Recovered/Resolved]
  - Femoral neck fracture [Unknown]
  - Nausea [Unknown]
  - Vomiting [Unknown]
  - Constipation [Unknown]

NARRATIVE: CASE EVENT DATE: 201705
